FAERS Safety Report 14333761 (Version 1)
Quarter: 2017Q4

REPORT INFORMATION
  Report Type: Spontaneous
  Country: US (occurrence: US)
  Receive Date: 20171227
  Receipt Date: 20171227
  Transmission Date: 20180321
  Serious: Yes (Other)
  Sender: FDA-Public Use
  Company Number: None

PATIENT
  Age: 64 Year
  Sex: Female
  Weight: 81.8 kg

DRUGS (1)
  1. IBRANCE [Suspect]
     Active Substance: PALBOCICLIB
     Indication: NEOPLASM MALIGNANT
     Dosage: 50MG 1C QD FOR 21 DAYS BY MOUTH
     Route: 048
     Dates: start: 20170801, end: 20170907

REACTIONS (2)
  - White blood cell count decreased [None]
  - Product use issue [None]

NARRATIVE: CASE EVENT DATE: 20170814
